FAERS Safety Report 4766976-8 (Version None)
Quarter: 2005Q3

REPORT INFORMATION
  Report Type: 
  Country: None (occurrence: None)
  Receive Date: 20050908
  Receipt Date: 20050826
  Transmission Date: 20060218
  Serious: Yes (Death, Disabling)
  Sender: FDA-Public Use
  Company Number: 2005JP001534

PATIENT
  Age: 88 Year
  Sex: Male
  Weight: 47 kg

DRUGS (8)
  1. FUNGUARD (MICAFUNGIN) INJECTION [Suspect]
     Indication: PNEUMONIA
     Dosage: 150.00 MG, UID/QD/IV DRIP
     Route: 041
     Dates: start: 20050715, end: 20050727
  2. ISCOTIN(ISONIAZID) TABLET [Suspect]
     Indication: PULMONARY TUBERCULOSIS
     Dosage: 200.00 MG, UID/QD, ORAL
     Route: 048
     Dates: start: 20050318, end: 20050727
  3. RIMACTANE [Suspect]
     Indication: PULMONARY TUBERCULOSIS
     Dosage: 450.00 MG, UID/QD, ORAL
     Route: 048
     Dates: start: 20050318, end: 20050727
  4. ETAMBUTOL (ETHAMBUTOL) [Concomitant]
  5. PYRIDOXAL PHOSPHATE (PYRIDOXAL PHOSPHATE) [Concomitant]
  6. PREDNISONE [Concomitant]
  7. LUPRAC (TORASEMIDE) [Concomitant]
  8. LANIRAPID (METILDOGOXIN) [Concomitant]

REACTIONS (14)
  - ALANINE AMINOTRANSFERASE INCREASED [None]
  - ASPARTATE AMINOTRANSFERASE INCREASED [None]
  - BLOOD BILIRUBIN INCREASED [None]
  - BLOOD LACTATE DEHYDROGENASE INCREASED [None]
  - BLOOD UREA INCREASED [None]
  - CANDIDIASIS [None]
  - CONDITION AGGRAVATED [None]
  - DECREASED APPETITE [None]
  - DEHYDRATION [None]
  - EMPHYSEMA [None]
  - LIVER DISORDER [None]
  - PNEUMONIA BACTERIAL [None]
  - PROTHROMBIN TIME RATIO INCREASED [None]
  - STAPHYLOCOCCAL INFECTION [None]
